FAERS Safety Report 5837304-1 (Version None)
Quarter: 2008Q3

REPORT INFORMATION
  Report Type: 
  Country: None (occurrence: None)
  Receive Date: 20080807
  Receipt Date: 20080726
  Transmission Date: 20090109
  Serious: Yes (Hospitalization)
  Sender: FDA-Public Use
  Company Number: PHHO2008IT07698

PATIENT
  Sex: Male

DRUGS (1)
  1. GLEEVEC [Suspect]
     Indication: MASTOCYTOSIS
     Dosage: 200 MG, QD
     Dates: start: 20050518, end: 20080604

REACTIONS (3)
  - ARRHYTHMIA SUPRAVENTRICULAR [None]
  - SYNCOPE [None]
  - TACHYCARDIA [None]
